FAERS Safety Report 8014433-8 (Version None)
Quarter: 2011Q4

REPORT INFORMATION
  Report Type: 
  Country: None (occurrence: None)
  Receive Date: 20111229
  Receipt Date: 20111219
  Transmission Date: 20120403
  Serious: Yes (Hospitalization, Other)
  Sender: FDA-Public Use
  Company Number: PHHY2011FR113070

PATIENT
  Age: 75 Year
  Sex: Female

DRUGS (5)
  1. PACLITAXEL [Suspect]
     Indication: CHEMOTHERAPY
     Dosage: 138 MG, UNK
     Route: 042
     Dates: start: 20110905, end: 20110905
  2. ONDANSETRON RENAUDIN [Concomitant]
     Dates: start: 20110905, end: 20110905
  3. METHYLPREDNISOLONE MYLAN [Concomitant]
     Dates: start: 20110905, end: 20110905
  4. ZANTAC [Concomitant]
     Dates: start: 20110905, end: 20110905
  5. AVASTIN [Suspect]
     Indication: CHEMOTHERAPY
     Dosage: 675 MG, UNK
     Route: 042
     Dates: start: 20110905, end: 20110905

REACTIONS (6)
  - METASTASES TO LIVER [None]
  - CYTOLYTIC HEPATITIS [None]
  - PSEUDOMONAS TEST POSITIVE [None]
  - JAUNDICE [None]
  - BILIARY DILATATION [None]
  - PYREXIA [None]
